FAERS Safety Report 8399467 (Version 3)
Quarter: 2014Q1

REPORT INFORMATION
  Report Type: Spontaneous
  Country: US (occurrence: None)
  Receive Date: 20111227
  Receipt Date: 20130107
  Transmission Date: 20141002
  Serious: Yes (Other)
  Sender: FDA-Public Use
  Company Number: PHEH2011US03895

PATIENT
  Age: 44 Year
  Sex: Female
  Weight: 51.2 kg

DRUGS (2)
  1. GILENYA [Suspect]
     Indication: RELAPSING-REMITTING MULTIPLE SCLEROSIS
     Dosage: 0.5 MG, EVERYDAY, ORAL ; 0.5 MG, EVERY DAY, ORAL
     Route: 048
  2. IMITREX (SUMATRIPTAN SUCCINATE) [Concomitant]

REACTIONS (3)
  - Depression [None]
  - Herpes zoster [None]
  - Dry skin [None]
